FAERS Safety Report 9494200 (Version 1)
Quarter: 2013Q3

REPORT INFORMATION
  Report Type: Spontaneous
  Country: US (occurrence: None)
  Receive Date: 20130828
  Receipt Date: 20130828
  Transmission Date: 20140515
  Serious: Yes (Life-Threatening, Other)
  Sender: FDA-Public Use
  Company Number: 00158605A

PATIENT
  Age: 54 Year
  Sex: Female

DRUGS (1)
  1. MEANINGFUL BEAUTY ANTIOXIDANT DAY CREME SPF 20 [Suspect]
     Dates: start: 20130409, end: 20130501

REACTIONS (9)
  - Swelling face [None]
  - Local swelling [None]
  - Urticaria [None]
  - Erythema [None]
  - Throat irritation [None]
  - Throat tightness [None]
  - Dyspnoea [None]
  - Anaphylactic shock [None]
  - Blood pressure increased [None]
